FAERS Safety Report 11308317 (Version 1)
Quarter: 2015Q3

REPORT INFORMATION
  Report Type: Spontaneous
  Country: GB (occurrence: GB)
  Receive Date: 20150724
  Receipt Date: 20150724
  Transmission Date: 20151125
  Serious: Yes (Other)
  Sender: FDA-Public Use
  Company Number: GB-BAYER-2015-378882

PATIENT
  Age: 47 Year
  Sex: Male
  Weight: 89.81 kg

DRUGS (10)
  1. SAW PALMETTO [Concomitant]
     Active Substance: SAW PALMETTO
  2. TAMSULOSIN [Concomitant]
     Active Substance: TAMSULOSIN
  3. VITAMIN D [Concomitant]
     Active Substance: CHOLECALCIFEROL
  4. DOXYCYCLINE HYCLATE. [Concomitant]
     Active Substance: DOXYCYCLINE HYCLATE
  5. TRIMETHOPRIM. [Concomitant]
     Active Substance: TRIMETHOPRIM
  6. CIPROFLOXACIN. [Suspect]
     Active Substance: CIPROFLOXACIN
     Dosage: 500 MG, BID
     Route: 048
     Dates: start: 20150603, end: 20150616
  7. SIMVASTATIN. [Concomitant]
     Active Substance: SIMVASTATIN
  8. CEFALEXIN [Concomitant]
     Active Substance: CEPHALEXIN
  9. VITAMIN C [Concomitant]
     Active Substance: ASCORBIC ACID
  10. CO-AMOXICLAV [Concomitant]
     Active Substance: AMOXICILLIN\CLAVULANIC ACID

REACTIONS (5)
  - Paraesthesia [Not Recovered/Not Resolved]
  - Tinnitus [Not Recovered/Not Resolved]
  - Myalgia [Recovering/Resolving]
  - Arthralgia [Not Recovered/Not Resolved]
  - Peripheral sensory neuropathy [Not Recovered/Not Resolved]

NARRATIVE: CASE EVENT DATE: 20150606
